FAERS Safety Report 5011512-4 (Version None)
Quarter: 2006Q2

REPORT INFORMATION
  Report Type: 
  Country: None (occurrence: None)
  Receive Date: 20060524
  Receipt Date: 20060504
  Transmission Date: 20061013
  Serious: Yes (Hospitalization)
  Sender: FDA-Public Use
  Company Number: 2006-288

PATIENT
  Sex: Male

DRUGS (1)
  1. HIBICLENS [Suspect]
     Indication: LOCAL ANTIBACTERIAL THERAPY
     Dosage: TOPICAL ANTISEPTIC
     Route: 061

REACTIONS (1)
  - SWELLING FACE [None]
